FAERS Safety Report 19285089 (Version 2)
Quarter: 2021Q2

REPORT INFORMATION
  Report Type: Report from Study
  Country: BR (occurrence: BR)
  Receive Date: 20210521
  Receipt Date: 20210607
  Transmission Date: 20210717
  Serious: Yes (Hospitalization, Other)
  Sender: FDA-Public Use
  Company Number: NVSC2021BR110881

PATIENT
  Age: 60 Year
  Sex: Female

DRUGS (10)
  1. IBRANCE [Concomitant]
     Active Substance: PALBOCICLIB
     Indication: BREAST CANCER METASTATIC
     Dosage: UNK
     Route: 065
  2. AFINITOR [Suspect]
     Active Substance: EVEROLIMUS
     Dosage: UNK
     Route: 065
     Dates: start: 20191023, end: 201911
  3. AFINITOR [Suspect]
     Active Substance: EVEROLIMUS
     Dosage: UNK
     Route: 065
     Dates: start: 201911, end: 20191228
  4. AROMASIN [Concomitant]
     Active Substance: EXEMESTANE
     Indication: PRODUCT USED FOR UNKNOWN INDICATION
     Dosage: UNK
     Route: 065
     Dates: start: 20191023
  5. AFINITOR [Suspect]
     Active Substance: EVEROLIMUS
     Dosage: 5 MG
     Route: 065
  6. ANASTROZOL [Suspect]
     Active Substance: ANASTROZOLE
     Indication: BREAST CANCER METASTATIC
     Dosage: UNK
     Route: 065
  7. AFINITOR [Suspect]
     Active Substance: EVEROLIMUS
     Dosage: UNK
     Route: 065
  8. XELODA [Concomitant]
     Active Substance: CAPECITABINE
     Indication: BREAST CANCER METASTATIC
     Dosage: UNK
     Route: 065
     Dates: start: 202005, end: 202104
  9. AFINITOR [Suspect]
     Active Substance: EVEROLIMUS
     Indication: BREAST CANCER METASTATIC
     Dosage: 10 MG (STOPPED AFTER APPROXIMATELY 3 MONTHS)
     Route: 065
     Dates: start: 2019
  10. AROMASIN [Concomitant]
     Active Substance: EXEMESTANE
     Dosage: UNK
     Route: 065
     Dates: end: 202005

REACTIONS (27)
  - Blood glucose increased [Not Recovered/Not Resolved]
  - Blood glucose fluctuation [Unknown]
  - Rash [Recovered/Resolved]
  - Lip disorder [Unknown]
  - Gastrointestinal motility disorder [Unknown]
  - Abdominal pain [Recovered/Resolved]
  - Stomatitis [Unknown]
  - Blood urine present [Recovered/Resolved]
  - Liver injury [Unknown]
  - Blood triglycerides increased [Unknown]
  - White blood cell count increased [Unknown]
  - Oral discomfort [Unknown]
  - Rash [Unknown]
  - Oral mucosal erythema [Unknown]
  - Dysuria [Recovered/Resolved]
  - Constipation [Not Recovered/Not Resolved]
  - Rash macular [Unknown]
  - Oral mucosal blistering [Recovered/Resolved]
  - Erythema [Recovered/Resolved]
  - Blood glucose abnormal [Unknown]
  - Malaise [Recovered/Resolved]
  - Metastases to breast [Unknown]
  - Oral pain [Unknown]
  - Abdominal pain upper [Recovered/Resolved]
  - Gastrointestinal disorder [Unknown]
  - Micturition urgency [Recovered/Resolved]
  - Urinary tract pain [Not Recovered/Not Resolved]

NARRATIVE: CASE EVENT DATE: 201910
